FAERS Safety Report 16032097 (Version 1)
Quarter: 2019Q1

REPORT INFORMATION
  Report Type: Spontaneous
  Country: FR (occurrence: FR)
  Receive Date: 20190304
  Receipt Date: 20190304
  Transmission Date: 20190418
  Serious: Yes (Life-Threatening, Other)
  Sender: FDA-Public Use
  Company Number: PHHY2018FR192945

PATIENT
  Age: 22 Year
  Sex: Female
  Weight: 60 kg

DRUGS (2)
  1. PARACETAMOL [Suspect]
     Active Substance: ACETAMINOPHEN
     Indication: HEADACHE
     Dosage: 11 G (11 G AU TOTAL SUR LES 2 JOURS)
     Route: 048
  2. FLANID [Suspect]
     Active Substance: TIAPROFENIC ACID
     Indication: HEADACHE
     Dosage: 1.6 G, UNK
     Route: 048

REACTIONS (3)
  - Hepatitis acute [Recovered/Resolved]
  - Medication error [Recovered/Resolved]
  - Overdose [Unknown]

NARRATIVE: CASE EVENT DATE: 20181117
